FAERS Safety Report 4435910-2 (Version None)
Quarter: 2004Q3

REPORT INFORMATION
  Report Type: 
  Country: None (occurrence: None)
  Receive Date: 20040826
  Receipt Date: 20040817
  Transmission Date: 20050211
  Serious: Yes (Other)
  Sender: FDA-Public Use
  Company Number: 2004215130US

PATIENT
  Sex: Female

DRUGS (4)
  1. PROVERA [Suspect]
     Indication: HORMONE REPLACEMENT THERAPY
  2. PREMARIN [Suspect]
     Indication: HORMONE REPLACEMENT THERAPY
  3. PREMPRO [Suspect]
     Indication: HORMONE REPLACEMENT THERAPY
  4. CYCRIN [Suspect]
     Indication: HORMONE REPLACEMENT THERAPY

REACTIONS (4)
  - BREAST CANCER FEMALE [None]
  - CARDIAC DISORDER [None]
  - CARDIAC FAILURE [None]
  - POST PROCEDURAL COMPLICATION [None]
